FAERS Safety Report 6396707-X (Version None)
Quarter: 2009Q4

REPORT INFORMATION
  Report Type: 
  Country: None (occurrence: None)
  Receive Date: 20091012
  Receipt Date: 20090916
  Transmission Date: 20100525
  Serious: Yes (Other)
  Sender: FDA-Public Use
  Company Number: PT-NAPPMUNDI-GBR-2009-0005657

PATIENT
  Age: 23 Year
  Sex: Female

DRUGS (3)
  1. BUPRENORPHINE [Suspect]
     Indication: PAIN
     Dosage: 35 MCG, Q1H
     Route: 062
  2. MORPHINE SULFATE [Suspect]
     Indication: PAIN
     Dosage: 10 MG, UNK
     Route: 065
  3. ANTIDEPRESSANTS [Suspect]
     Indication: DRUG USE FOR UNKNOWN INDICATION
     Route: 065

REACTIONS (2)
  - DEPRESSIVE SYMPTOM [None]
  - SUICIDE ATTEMPT [None]
